FAERS Safety Report 4971149-X (Version None)
Quarter: 2006Q1

REPORT INFORMATION
  Report Type: 
  Country: None (occurrence: None)
  Receive Date: 20060223
  Receipt Date: 20050128
  Transmission Date: 20060701
  Serious: No
  Sender: FDA-Public Use
  Company Number: HQWYE028002FEB05

PATIENT
  Age: 25 Year
  Sex: Female
  Weight: 72.64 kg

DRUGS (2)
  1. EFFEXOR [Suspect]
     Indication: PREMENSTRUAL SYNDROME
     Dosage: SEE IMAGE
     Route: 048
     Dates: end: 19970101
  2. EFFEXOR [Suspect]
     Indication: PREMENSTRUAL SYNDROME
     Dosage: SEE IMAGE
     Route: 048
     Dates: start: 19950101

REACTIONS (6)
  - AMNESIA [None]
  - DISORIENTATION [None]
  - DISTURBANCE IN ATTENTION [None]
  - DIZZINESS [None]
  - IMPAIRED DRIVING ABILITY [None]
  - UNEVALUABLE EVENT [None]
